FAERS Safety Report 5013662-5 (Version None)
Quarter: 2006Q2

REPORT INFORMATION
  Report Type: 
  Country: None (occurrence: None)
  Receive Date: 20060530
  Receipt Date: 20060525
  Transmission Date: 20061013
  Serious: Yes (Death)
  Sender: FDA-Public Use
  Company Number: IN-GLAXOSMITHKLINE-B0425449A

PATIENT
  Age: 60 Year
  Sex: Male

DRUGS (5)
  1. TIMENTIN [Suspect]
     Indication: PNEUMONIA ASPIRATION
     Dosage: 3.1G THREE TIMES PER DAY
     Route: 042
     Dates: start: 20060515, end: 20060520
  2. AMIKACIN [Concomitant]
     Indication: PNEUMONIA ASPIRATION
  3. METROGYL [Concomitant]
     Indication: PNEUMONIA ASPIRATION
  4. AMPICILLIN SODIUM/SULBACTAM SODIUM [Concomitant]
     Indication: PNEUMONIA
  5. LEVOFLOXACIN [Concomitant]
     Indication: PNEUMONIA

REACTIONS (3)
  - CONDITION AGGRAVATED [None]
  - DRUG INEFFECTIVE [None]
  - PNEUMONIA [None]
